FAERS Safety Report 15518076 (Version 2)
Quarter: 2018Q4

REPORT INFORMATION
  Report Type: Report from Study
  Country: DE (occurrence: DE)
  Receive Date: 20181017
  Receipt Date: 20181122
  Transmission Date: 20190205
  Serious: Yes (Death, Life-Threatening, Hospitalization)
  Sender: FDA-Public Use
  Company Number: DE-PFIZER INC-2018273105

PATIENT
  Age: 60 Year
  Sex: Male
  Weight: 63 kg

DRUGS (2)
  1. DOCETAXEL. [Suspect]
     Active Substance: DOCETAXEL
     Indication: LUNG ADENOCARCINOMA
     Dosage: FORM: LIQUID, DOSE: 75 MG/M2 BSA
     Route: 042
     Dates: start: 20180516, end: 20180606
  2. VARGATEF [Suspect]
     Active Substance: NINTEDANIB
     Indication: LUNG ADENOCARCINOMA
     Dosage: 400 MG, 1X/DAY
     Route: 048
     Dates: start: 20180517, end: 20180604

REACTIONS (6)
  - Constipation [Unknown]
  - Anaemia [Recovered/Resolved]
  - Vomiting [Recovered/Resolved]
  - Death [Fatal]
  - Dysphagia [Unknown]
  - Nausea [Not Recovered/Not Resolved]

NARRATIVE: CASE EVENT DATE: 20180601
